FAERS Safety Report 7715618-8 (Version None)
Quarter: 2011Q3

REPORT INFORMATION
  Report Type: 
  Country: None (occurrence: None)
  Receive Date: 20110829
  Receipt Date: 20110822
  Transmission Date: 20111222
  Serious: Yes (Death, Hospitalization, Other)
  Sender: FDA-Public Use
  Company Number: JP-ROCHE-773803

PATIENT
  Sex: Female
  Weight: 46 kg

DRUGS (11)
  1. PACLITAXEL [Concomitant]
     Route: 041
     Dates: start: 20110118, end: 20110401
  2. GRANISETRON HYDROCHLORIDE [Concomitant]
     Route: 041
     Dates: start: 20110118, end: 20110401
  3. RANITIDINE HYDROCHLORIDE [Concomitant]
     Route: 041
     Dates: start: 20110118, end: 20110401
  4. RESTAMIN [Concomitant]
     Dosage: FORM: PERORAL AGENT
     Route: 048
     Dates: start: 20110118, end: 20110401
  5. CARBOPLATIN [Concomitant]
     Route: 041
     Dates: start: 20110118, end: 20110401
  6. ACETAMINOPHEN [Concomitant]
     Dosage: FORM: PERORAL AGENT
     Route: 048
     Dates: start: 20110101
  7. AVASTIN [Suspect]
     Indication: LUNG ADENOCARCINOMA RECURRENT
     Route: 041
     Dates: start: 20101109
  8. AVASTIN [Suspect]
     Route: 041
     Dates: start: 20110118, end: 20110519
  9. DEXAMETHASONE SODIUM PHOSPHATE [Concomitant]
     Route: 041
     Dates: start: 20110118, end: 20110401
  10. TARCEVA [Suspect]
     Indication: LUNG ADENOCARCINOMA RECURRENT
     Dosage: DOSAGE IS UNCERTAIN.
     Route: 048
     Dates: start: 20110111, end: 20110117
  11. PACLITAXEL [Concomitant]
     Dosage: DOSAGE IS UNCERTAIN
     Route: 041

REACTIONS (13)
  - METASTASES TO LYMPH NODES [None]
  - PANCREATITIS ACUTE [None]
  - EMBOLISM [None]
  - JAUNDICE CHOLESTATIC [None]
  - METASTASES TO PANCREAS [None]
  - NEUTROPHIL COUNT DECREASED [None]
  - HYPERTENSION [None]
  - ADNEXA UTERI MASS [None]
  - DISEASE PROGRESSION [None]
  - METASTASES TO BONE [None]
  - HYDRONEPHROSIS [None]
  - SKIN DISORDER [None]
  - PANCREATIC CARCINOMA [None]
